FAERS Safety Report 23778100 (Version 1)
Quarter: 2024Q2

REPORT INFORMATION
  Report Type: Spontaneous
  Country: US (occurrence: US)
  Receive Date: 20240424
  Receipt Date: 20240424
  Transmission Date: 20240716
  Serious: No
  Sender: FDA-Public Use
  Company Number: US-PFIZER INC-PV202300167352

PATIENT
  Age: 52 Year
  Sex: Female

DRUGS (2)
  1. XELJANZ XR [Suspect]
     Active Substance: TOFACITINIB CITRATE
     Indication: Rheumatoid arthritis
     Dosage: 11 MG, DAILY
     Route: 048
     Dates: start: 20230904, end: 202401
  2. HUMIRA [Concomitant]
     Active Substance: ADALIMUMAB
     Dosage: PEN (2/BOX)

REACTIONS (2)
  - Product dose omission in error [Unknown]
  - Drug ineffective [Unknown]
